FAERS Safety Report 19943940 (Version 1)
Quarter: 2021Q4

REPORT INFORMATION
  Report Type: Spontaneous
  Country: US (occurrence: US)
  Receive Date: 20211007
  Receipt Date: 20211007
  Transmission Date: 20220303
  Serious: Yes (Other)
  Sender: FDA-Public Use
  Company Number: None

PATIENT
  Age: 76 Year
  Sex: Male

DRUGS (1)
  1. COSENTYX [Suspect]
     Active Substance: SECUKINUMAB
     Indication: Psoriasis
     Dosage: ?          OTHER FREQUENCY:N/A;
     Route: 058
     Dates: start: 20210603, end: 20211007

REACTIONS (2)
  - Therapy interrupted [None]
  - Mycobacterium tuberculosis complex test positive [None]

NARRATIVE: CASE EVENT DATE: 20211007
